FAERS Safety Report 24777951 (Version 1)
Quarter: 2024Q4

REPORT INFORMATION
  Report Type: Report from Study
  Country: US (occurrence: US)
  Receive Date: 20241226
  Receipt Date: 20241226
  Transmission Date: 20250115
  Serious: Yes (Hospitalization, Other)
  Sender: ROCHE
  Company Number: US-ROCHE-10000161789

PATIENT
  Age: 56 Year
  Sex: Female

DRUGS (4)
  1. OCREVUS [Suspect]
     Active Substance: OCRELIZUMAB
     Indication: Relapsing multiple sclerosis
     Route: 042
     Dates: end: 20191114
  2. LEVOTHYROXINE [Concomitant]
     Active Substance: LEVOTHYROXINE
     Dosage: 50 MCG
  3. OMEPRAZOLE [Concomitant]
     Active Substance: OMEPRAZOLE
  4. LORAZEPAM [Concomitant]
     Active Substance: LORAZEPAM

REACTIONS (7)
  - Myelitis transverse [Unknown]
  - Urinary tract infection [Unknown]
  - Fatigue [Unknown]
  - Gait disturbance [Unknown]
  - Off label use [Unknown]
  - Paraesthesia [Unknown]
  - Hypoaesthesia [Unknown]

NARRATIVE: CASE EVENT DATE: 20240117
